FAERS Safety Report 25472589 (Version 1)
Quarter: 2025Q2

REPORT INFORMATION
  Report Type: Spontaneous
  Country: DK (occurrence: DK)
  Receive Date: 20250624
  Receipt Date: 20250624
  Transmission Date: 20250717
  Serious: Yes (Hospitalization, Other)
  Sender: BOEHRINGER INGELHEIM
  Company Number: None

PATIENT
  Age: 74 Year
  Sex: Female

DRUGS (1)
  1. JARDIANCE [Suspect]
     Active Substance: EMPAGLIFLOZIN
     Indication: Type 2 diabetes mellitus
     Dates: start: 20250526, end: 20250603

REACTIONS (8)
  - Vomiting [Unknown]
  - Nausea [Unknown]
  - Depressed level of consciousness [Unknown]
  - Urosepsis [Recovering/Resolving]
  - Escherichia bacteraemia [Recovering/Resolving]
  - Pyrexia [Unknown]
  - Hypotension [Unknown]
  - Genital erythema [Unknown]

NARRATIVE: CASE EVENT DATE: 20250531
